FAERS Safety Report 5071530-7 (Version None)
Quarter: 2006Q3

REPORT INFORMATION
  Report Type: 
  Country: None (occurrence: None)
  Receive Date: 20060714
  Receipt Date: 20060531
  Transmission Date: 20061208
  Serious: No
  Sender: FDA-Public Use
  Company Number: 2006SP002280

PATIENT
  Age: 70 Year
  Sex: Female
  Weight: 93.441 kg

DRUGS (12)
  1. LUNESTA [Suspect]
     Indication: INSOMNIA
     Dosage: SEE IMAGE
     Route: 048
     Dates: start: 20060530
  2. LUNESTA [Suspect]
     Indication: INSOMNIA
     Dosage: SEE IMAGE
     Route: 048
     Dates: start: 20060605
  3. COZAAR [Concomitant]
  4. ATENOLOL [Concomitant]
  5. LASIX [Concomitant]
  6. NEXIUM [Concomitant]
  7. WELLBUTRIN [Concomitant]
  8. REQUIP [Concomitant]
  9. ATORVASTATIN CALCIUM [Concomitant]
  10. PIOGLITAZONE HCL [Concomitant]
  11. ASPIRIN [Concomitant]
  12. VISTARIL [Concomitant]

REACTIONS (1)
  - MIDDLE INSOMNIA [None]
